FAERS Safety Report 9988660 (Version 1)
Quarter: 2014Q1

REPORT INFORMATION
  Report Type: Spontaneous
  Country: US (occurrence: US)
  Receive Date: 20140310
  Receipt Date: 20140310
  Transmission Date: 20141002
  Serious: Yes (Other)
  Sender: FDA-Public Use
  Company Number: US-AMGEN-USASP2014016123

PATIENT
  Age: 68 Year
  Sex: Female

DRUGS (1)
  1. ENBREL [Suspect]
     Indication: RHEUMATOID ARTHRITIS
     Dosage: 50 MG, QWK
     Route: 058

REACTIONS (8)
  - Diverticulum [Unknown]
  - Gastrooesophageal sphincter insufficiency [Unknown]
  - Diverticulitis [Unknown]
  - Blood pressure increased [Unknown]
  - Loss of consciousness [Unknown]
  - Autoimmune thyroiditis [Unknown]
  - Injection site vesicles [Unknown]
  - Gastrooesophageal reflux disease [Unknown]
